FAERS Safety Report 10172003 (Version 2)
Quarter: 2014Q2

REPORT INFORMATION
  Report Type: Spontaneous
  Country: US (occurrence: US)
  Receive Date: 20140515
  Receipt Date: 20140613
  Transmission Date: 20141212
  Serious: Yes (Other)
  Sender: FDA-Public Use
  Company Number: US-PFIZER INC-2014131750

PATIENT
  Age: 58 Year
  Sex: Female
  Weight: 88.44 kg

DRUGS (3)
  1. TIKOSYN [Suspect]
     Indication: ARRHYTHMIA
     Dosage: 375 UG, 2X/DAY
     Route: 048
  2. SYNTHROID [Concomitant]
     Indication: THYROID DISORDER
     Dosage: UNK
  3. CARDURA [Concomitant]
     Indication: HYPERTENSION
     Dosage: 1 MG, UNK

REACTIONS (1)
  - Arthropathy [Unknown]
